FAERS Safety Report 11392191 (Version 1)
Quarter: 2015Q3

REPORT INFORMATION
  Report Type: Spontaneous
  Country: US (occurrence: None)
  Receive Date: 20150817
  Receipt Date: 20150817
  Transmission Date: 20151125
  Serious: Yes (Other)
  Sender: FDA-Public Use
  Company Number: 2014P1002427

PATIENT
  Age: 8 Year

DRUGS (2)
  1. OXTELLAR XR [Suspect]
     Active Substance: OXCARBAZEPINE
  2. TRILEPTAL [Suspect]
     Active Substance: OXCARBAZEPINE

REACTIONS (1)
  - Leukopenia [None]
